FAERS Safety Report 6594893-X (Version None)
Quarter: 2010Q1

REPORT INFORMATION
  Report Type: 
  Country: None (occurrence: None)
  Receive Date: 20100222
  Receipt Date: 20100210
  Transmission Date: 20100710
  Serious: Yes (Other)
  Sender: FDA-Public Use
  Company Number: AU-PFIZER INC-2009293308

PATIENT
  Age: 32 Year
  Sex: Female
  Weight: 90 kg

DRUGS (2)
  1. ZELDOX [Suspect]
     Indication: MOOD SWINGS
     Dosage: 80 MG, 2X/DAY
     Route: 048
     Dates: start: 20090923, end: 20091007
  2. LAMOTRIGINE [Concomitant]
     Indication: MOOD SWINGS
     Dosage: 300 MG, 1X/DAY
     Route: 048
     Dates: start: 20090701

REACTIONS (6)
  - BALANCE DISORDER [None]
  - COORDINATION ABNORMAL [None]
  - FEELING ABNORMAL [None]
  - HANGOVER [None]
  - SEDATION [None]
  - VISION BLURRED [None]
